FAERS Safety Report 7109959-5 (Version None)
Quarter: 2010Q4

REPORT INFORMATION
  Report Type: 
  Country: None (occurrence: None)
  Receive Date: 20101118
  Receipt Date: 20101102
  Transmission Date: 20110411
  Serious: Yes (Hospitalization)
  Sender: FDA-Public Use
  Company Number: US-BAYER-201010386NA

PATIENT
  Age: 37 Year
  Sex: Female
  Weight: 104 kg

DRUGS (4)
  1. YASMIN [Suspect]
     Indication: CONTRACEPTION
     Route: 048
     Dates: start: 20050101, end: 20060501
  2. YAZ [Suspect]
     Indication: CONTRACEPTION
     Route: 048
     Dates: start: 20060501, end: 20090801
  3. PHENTERMINE [Concomitant]
  4. XANAX [Concomitant]

REACTIONS (9)
  - ABDOMINAL DISTENSION [None]
  - ABDOMINAL PAIN UPPER [None]
  - BILIARY COLIC [None]
  - CHOLECYSTITIS CHRONIC [None]
  - DYSPEPSIA [None]
  - GALLBLADDER CHOLESTEROLOSIS [None]
  - MURPHY'S SIGN POSITIVE [None]
  - NAUSEA [None]
  - VOMITING [None]
